FAERS Safety Report 11819661 (Version 3)
Quarter: 2017Q2

REPORT INFORMATION
  Report Type: Spontaneous
  Country: US (occurrence: US)
  Receive Date: 20151210
  Receipt Date: 20170407
  Transmission Date: 20170829
  Serious: Yes (Other)
  Sender: FDA-Public Use
  Company Number: US-JNJFOC-20150613321

PATIENT
  Age: 9 Year
  Sex: Male

DRUGS (2)
  1. RISPERDAL [Suspect]
     Active Substance: RISPERIDONE
     Indication: TOURETTE^S DISORDER
     Route: 048
     Dates: start: 200102, end: 200103
  2. RISPERDAL [Suspect]
     Active Substance: RISPERIDONE
     Indication: TOURETTE^S DISORDER
     Dosage: VARYING DOSES OF 0.25 MG, 0.5MG AND 0.75 MG
     Route: 048
     Dates: start: 200204, end: 200303

REACTIONS (7)
  - Gynaecomastia [Unknown]
  - Abnormal weight gain [Unknown]
  - Epiphysiolysis [Unknown]
  - Tic [Recovering/Resolving]
  - Product use in unapproved indication [Unknown]
  - Off label use [Unknown]
  - Drug ineffective for unapproved indication [Unknown]

NARRATIVE: CASE EVENT DATE: 200102
